FAERS Safety Report 12095462 (Version 1)
Quarter: 2016Q1

REPORT INFORMATION
  Report Type: Spontaneous
  Country: CA (occurrence: CA)
  Receive Date: 20160219
  Receipt Date: 20160219
  Transmission Date: 20160526
  Serious: Yes (Other)
  Sender: FDA-Public Use
  Company Number: CA-TEVA-636205USA

PATIENT
  Age: 17 Year
  Sex: Female

DRUGS (2)
  1. MINOCYCLINE [Suspect]
     Active Substance: MINOCYCLINE\MINOCYCLINE HYDROCHLORIDE
     Indication: PRODUCT USED FOR UNKNOWN INDICATION
     Dosage: 200 MILLIGRAM DAILY; STRENGTH:100MG CAPSULE; 1 CAP X 2/DAY, SUPPOSED TO TAKE IT FOR 4 MONTHS
     Dates: start: 201601
  2. VODKA (ALCOHOL) [Suspect]
     Active Substance: ALCOHOL
     Indication: PRODUCT USED FOR UNKNOWN INDICATION
     Dosage: CONSUMED 3 SHOTS OF VODKA
     Route: 048
     Dates: start: 20160211

REACTIONS (9)
  - Loss of consciousness [Recovered/Resolved]
  - Adverse event [Recovered/Resolved]
  - Vomiting [Recovered/Resolved]
  - Choking [Recovered/Resolved]
  - Urinary incontinence [Recovered/Resolved]
  - Amnesia [Unknown]
  - Abasia [Recovered/Resolved]
  - Dysstasia [Recovered/Resolved]
  - Activities of daily living impaired [Unknown]

NARRATIVE: CASE EVENT DATE: 20160211
